FAERS Safety Report 20068413 (Version 1)
Quarter: 2021Q4

REPORT INFORMATION
  Report Type: Spontaneous
  Country: US (occurrence: None)
  Receive Date: 20211112
  Receipt Date: 20211112
  Transmission Date: 20220304
  Serious: No
  Sender: FDA-Public Use
  Company Number: None

PATIENT
  Age: 13 Month
  Sex: Male
  Weight: 11.25 kg

DRUGS (1)
  1. HYDROXYZINE HYDROCHLORIDE [Suspect]
     Active Substance: HYDROXYZINE HYDROCHLORIDE
     Indication: Eczema
     Dosage: OTHER QUANTITY : 2.5 ML;?FREQUENCY : AT BEDTIME;?
     Route: 048
     Dates: start: 20211109, end: 20211110

REACTIONS (3)
  - Fall [None]
  - Balance disorder [None]
  - Sensory disturbance [None]

NARRATIVE: CASE EVENT DATE: 20211110
